FAERS Safety Report 6793559-0 (Version None)
Quarter: 2010Q2

REPORT INFORMATION
  Report Type: 
  Country: None (occurrence: None)
  Receive Date: 20100624
  Receipt Date: 20081204
  Transmission Date: 20101027
  Serious: Yes (Other)
  Sender: FDA-Public Use
  Company Number: US-PFIZER INC-2008150735

PATIENT
  Sex: Female

DRUGS (3)
  1. GEODON [Suspect]
     Indication: BIPOLAR DISORDER
  2. ABILIFY [Concomitant]
  3. DEPAKOTE [Concomitant]

REACTIONS (2)
  - AKATHISIA [None]
  - EXTRAPYRAMIDAL DISORDER [None]
